FAERS Safety Report 25156932 (Version 3)
Quarter: 2025Q3

REPORT INFORMATION
  Report Type: Spontaneous
  Country: CN (occurrence: CN)
  Receive Date: 20250403
  Receipt Date: 20250809
  Transmission Date: 20251020
  Serious: Yes (Other)
  Sender: ALEXION PHARMACEUTICALS
  Company Number: CN-ASTRAZENECA-202503CHN025048CN

PATIENT
  Age: 81 Year
  Sex: Male
  Weight: 60 kg

DRUGS (4)
  1. DAPAGLIFLOZIN [Suspect]
     Active Substance: DAPAGLIFLOZIN
     Indication: Cerebral infarction
     Dosage: 10 MILLIGRAM, QD
     Dates: start: 20250309, end: 20250312
  2. VOGLIBOSE [Suspect]
     Active Substance: VOGLIBOSE
     Indication: Cerebral infarction
     Dosage: 0.2 MILLIGRAM, TID
     Dates: start: 20250305, end: 20250312
  3. REPAGLINIDE [Suspect]
     Active Substance: REPAGLINIDE
     Indication: Diabetes mellitus
     Dosage: 1 MILLIGRAM, TID
     Dates: start: 20250306, end: 20250312
  4. METFORMIN HYDROCHLORIDE [Suspect]
     Active Substance: METFORMIN HYDROCHLORIDE
     Indication: Diabetes mellitus
     Dosage: .25 MILLIGRAM, BID
     Dates: start: 20250306, end: 20250312

REACTIONS (1)
  - Hypoglycaemic coma [Recovered/Resolved]

NARRATIVE: CASE EVENT DATE: 20250312
